FAERS Safety Report 11291058 (Version 7)
Quarter: 2016Q3

REPORT INFORMATION
  Report Type: Spontaneous
  Country: CA (occurrence: CA)
  Receive Date: 20150722
  Receipt Date: 20160808
  Transmission Date: 20161109
  Serious: Yes (Other)
  Sender: FDA-Public Use
  Company Number: CA-ROCHE-1610493

PATIENT
  Age: 52 Year
  Sex: Female
  Weight: 58 kg

DRUGS (24)
  1. XOLAIR [Suspect]
     Active Substance: OMALIZUMAB
     Route: 058
     Dates: start: 20091014
  2. XOLAIR [Suspect]
     Active Substance: OMALIZUMAB
     Route: 058
     Dates: start: 20091109
  3. XOLAIR [Suspect]
     Active Substance: OMALIZUMAB
     Route: 058
     Dates: start: 20100215
  4. XOLAIR [Suspect]
     Active Substance: OMALIZUMAB
     Route: 058
     Dates: start: 20160413
  5. XOLAIR [Suspect]
     Active Substance: OMALIZUMAB
     Route: 058
     Dates: start: 20081208
  6. XOLAIR [Suspect]
     Active Substance: OMALIZUMAB
     Route: 058
     Dates: start: 20090623
  7. XOLAIR [Suspect]
     Active Substance: OMALIZUMAB
     Route: 058
     Dates: start: 20131205
  8. XOLAIR [Suspect]
     Active Substance: OMALIZUMAB
     Route: 058
     Dates: start: 20150312
  9. XOLAIR [Suspect]
     Active Substance: OMALIZUMAB
     Route: 058
     Dates: start: 20131121
  10. LEVAQUIN [Suspect]
     Active Substance: LEVOFLOXACIN
     Route: 065
     Dates: end: 20150902
  11. INFLUENZA VACCINE [Concomitant]
     Active Substance: INFLUENZA VIRUS VACCINE
     Route: 065
     Dates: start: 20091105
  12. XOLAIR [Suspect]
     Active Substance: OMALIZUMAB
     Route: 058
     Dates: start: 20150904
  13. XOLAIR [Suspect]
     Active Substance: OMALIZUMAB
     Indication: ASTHMA
     Route: 058
     Dates: start: 20081008
  14. XOLAIR [Suspect]
     Active Substance: OMALIZUMAB
     Route: 058
     Dates: start: 20131219
  15. XOLAIR [Suspect]
     Active Substance: OMALIZUMAB
     Route: 058
     Dates: start: 20140213
  16. XOLAIR [Suspect]
     Active Substance: OMALIZUMAB
     Route: 058
     Dates: start: 201402
  17. WELLBUTRIN [Concomitant]
     Active Substance: BUPROPION HYDROCHLORIDE
  18. CELEXA [Concomitant]
     Active Substance: CITALOPRAM HYDROBROMIDE
  19. XOLAIR [Suspect]
     Active Substance: OMALIZUMAB
     Route: 058
     Dates: start: 20090330
  20. XOLAIR [Suspect]
     Active Substance: OMALIZUMAB
     Route: 058
     Dates: start: 20091123
  21. XOLAIR [Suspect]
     Active Substance: OMALIZUMAB
     Route: 058
     Dates: start: 20160706
  22. LEVAQUIN [Suspect]
     Active Substance: LEVOFLOXACIN
     Indication: BRONCHITIS
     Route: 065
  23. XOLAIR [Suspect]
     Active Substance: OMALIZUMAB
     Route: 058
     Dates: end: 201402
  24. QVAR [Concomitant]
     Active Substance: BECLOMETHASONE DIPROPIONATE
     Route: 065
     Dates: start: 20140403

REACTIONS (38)
  - Respiratory tract infection [Unknown]
  - Seasonal allergy [Unknown]
  - Blood pressure systolic increased [Not Recovered/Not Resolved]
  - Sputum discoloured [Unknown]
  - Chest injury [Unknown]
  - Lower respiratory tract inflammation [Unknown]
  - Tinnitus [Unknown]
  - Vaginal haemorrhage [Unknown]
  - Increased viscosity of bronchial secretion [Unknown]
  - Vomiting [Unknown]
  - Productive cough [Unknown]
  - Pain [Unknown]
  - Insomnia [Unknown]
  - Dyspnoea [Unknown]
  - Depression [Recovered/Resolved]
  - Asthenia [Unknown]
  - Blood pressure decreased [Unknown]
  - Heart rate decreased [Unknown]
  - Cough [Unknown]
  - Bronchitis [Unknown]
  - Rhinorrhoea [Unknown]
  - Oropharyngeal pain [Unknown]
  - Sinusitis [Unknown]
  - Nasopharyngitis [Unknown]
  - Headache [Unknown]
  - Asthma [Unknown]
  - Decreased appetite [Unknown]
  - Fatigue [Unknown]
  - Nausea [Unknown]
  - Increased bronchial secretion [Unknown]
  - Bronchial secretion retention [Recovering/Resolving]
  - Toothache [Unknown]
  - Weight decreased [Unknown]
  - Dizziness [Unknown]
  - Gait disturbance [Unknown]
  - Respiratory rate decreased [Unknown]
  - Sneezing [Unknown]
  - Arthralgia [Not Recovered/Not Resolved]

NARRATIVE: CASE EVENT DATE: 20091109
